FAERS Safety Report 4854727-8 (Version None)
Quarter: 2005Q4

REPORT INFORMATION
  Report Type: 
  Country: None (occurrence: None)
  Receive Date: 20051215
  Receipt Date: 20051109
  Transmission Date: 20060501
  Serious: Yes (Death)
  Sender: FDA-Public Use
  Company Number: CA-GLAXOSMITHKLINE-A0581854A

PATIENT
  Age: 22 Month
  Sex: Male
  Weight: 11.9 kg

DRUGS (4)
  1. FLOLAN [Suspect]
     Indication: PULMONARY HYPERTENSION
     Dosage: 40MGKM CONTINUOUS
     Route: 042
     Dates: start: 20041101, end: 20051106
  2. SILDENAFIL [Concomitant]
     Indication: PULMONARY HYPERTENSION
     Dates: start: 20040513, end: 20041106
  3. COUMADIN [Concomitant]
     Dates: start: 20040527, end: 20041106
  4. FERROUS FUMARATE [Concomitant]
     Dates: end: 20051106

REACTIONS (3)
  - CONVULSION [None]
  - DISEASE PROGRESSION [None]
  - NAUSEA [None]
